FAERS Safety Report 8054889-8 (Version None)
Quarter: 2012Q1

REPORT INFORMATION
  Report Type: 
  Country: None (occurrence: None)
  Receive Date: 20120119
  Receipt Date: 20120110
  Transmission Date: 20120608
  Serious: No
  Sender: FDA-Public Use
  Company Number: US-PFIZER INC-2012008450

PATIENT
  Age: 17 Year

DRUGS (1)
  1. SKELAXIN [Suspect]
     Dosage: UNK

REACTIONS (1)
  - IRON DEFICIENCY ANAEMIA [None]
